FAERS Safety Report 7276835 (Version 3)
Quarter: 2016Q2

REPORT INFORMATION
  Report Type: Report from Study
  Country: FR (occurrence: FR)
  Receive Date: 20100212
  Receipt Date: 20160420
  Transmission Date: 20160815
  Serious: Yes (Life-Threatening)
  Sender: FDA-Public Use
  Company Number: FR-SANOFI-AVENTIS-2010SA007522

PATIENT
  Age: 84 Year
  Sex: Female
  Weight: 63 kg

DRUGS (15)
  1. DERMOVAL [Suspect]
     Active Substance: CLOBETASOL
     Indication: PEMPHIGOID
     Route: 061
     Dates: start: 20090624, end: 20091214
  2. ESOMEPRAZOLE [Concomitant]
     Active Substance: ESOMEPRAZOLE
     Indication: GASTRITIS
     Route: 048
     Dates: start: 20090728
  3. ARAVA [Suspect]
     Active Substance: LEFLUNOMIDE
     Indication: PEMPHIGOID
     Route: 048
     Dates: start: 20091118, end: 20091214
  4. RISPERDAL [Concomitant]
     Active Substance: RISPERIDONE
     Indication: AGITATION
     Route: 048
     Dates: start: 20090728
  5. DAFLON [Concomitant]
     Active Substance: DIOSMIN\HESPERIDIN
     Indication: PERIPHERAL VENOUS DISEASE
     Route: 048
     Dates: start: 20091102
  6. AMYCOR [Concomitant]
     Active Substance: BIFONAZOLE
     Route: 061
     Dates: start: 20091119, end: 20091209
  7. HEMIGOXINE NATIVELLE [Concomitant]
     Active Substance: DIGOXIN
     Indication: MYOCARDIAL ISCHAEMIA
     Route: 048
     Dates: start: 20090818
  8. ARIXTRA [Concomitant]
     Active Substance: FONDAPARINUX SODIUM
     Route: 058
     Dates: start: 20090728
  9. VOGALENE [Concomitant]
     Active Substance: METOPIMAZINE
     Indication: VOMITING
     Route: 048
     Dates: start: 20090728
  10. ARICEPT [Concomitant]
     Active Substance: DONEPEZIL HYDROCHLORIDE
     Indication: DEMENTIA
     Route: 048
  11. DIFFU K [Concomitant]
     Active Substance: POTASSIUM CHLORIDE
     Indication: HYPOKALAEMIA
  12. ADANCOR [Concomitant]
     Active Substance: NICORANDIL
     Indication: MYOCARDIAL ISCHAEMIA
     Route: 048
  13. CLARITYNE [Concomitant]
     Active Substance: LORATADINE
     Indication: PRURITUS
     Route: 048
  14. TARDYFERON /GFR/ [Concomitant]
     Indication: IRON DEFICIENCY
     Route: 048
     Dates: start: 20090813
  15. DOLIPRANE [Concomitant]
     Active Substance: ACETAMINOPHEN
     Indication: PAIN
     Route: 048
     Dates: start: 20090728

REACTIONS (2)
  - Lung infection [Recovered/Resolved]
  - Cardiac failure [Recovered/Resolved]

NARRATIVE: CASE EVENT DATE: 20091214
